FAERS Safety Report 7130760-0 (Version None)
Quarter: 2010Q4

REPORT INFORMATION
  Report Type: 
  Country: None (occurrence: None)
  Receive Date: 20101029
  Receipt Date: 20100819
  Transmission Date: 20110411
  Serious: Yes (Hospitalization)
  Sender: FDA-Public Use
  Company Number: RO-003480

PATIENT
  Sex: Male
  Weight: 72 kg

DRUGS (4)
  1. DEGARELIX (DEGARELIX) (240 MG, 480 MG) [Suspect]
     Indication: PROSTATE CANCER
     Dosage: (240 MG 1X SUBCUTANEOUS), (480 MG 1X/3 MONTHS SUBCUTANEOUS)
     Route: 058
     Dates: start: 20091109, end: 20091109
  2. DEGARELIX (DEGARELIX) (240 MG, 480 MG) [Suspect]
     Indication: PROSTATE CANCER
     Dosage: (240 MG 1X SUBCUTANEOUS), (480 MG 1X/3 MONTHS SUBCUTANEOUS)
     Route: 058
     Dates: start: 20091208
  3. NOLICIN [Concomitant]
  4. CASODEX [Concomitant]

REACTIONS (6)
  - C-REACTIVE PROTEIN INCREASED [None]
  - LEUKOCYTOSIS [None]
  - LYMPHOPENIA [None]
  - NEUTROPHIL COUNT INCREASED [None]
  - SUBILEUS [None]
  - TUMOUR INVASION [None]
